FAERS Safety Report 12862668 (Version 1)
Quarter: 2016Q4

REPORT INFORMATION
  Report Type: Report from Study
  Country: US (occurrence: US)
  Receive Date: 20161019
  Receipt Date: 20161019
  Transmission Date: 20170207
  Serious: Yes (Other)
  Sender: FDA-Public Use
  Company Number: US-BIOGEN-2016BI00306728

PATIENT

DRUGS (1)
  1. TYSABRI [Suspect]
     Active Substance: NATALIZUMAB
     Indication: MULTIPLE SCLEROSIS
     Route: 064
     Dates: start: 20090827, end: 20160618

REACTIONS (3)
  - Heart disease congenital [Recovered/Resolved]
  - Foetal exposure timing unspecified [Unknown]
  - Trisomy 21 [Recovered/Resolved]
